FAERS Safety Report 24398352 (Version 1)
Quarter: 2024Q4

REPORT INFORMATION
  Report Type: Spontaneous
  Country: US (occurrence: US)
  Receive Date: 20241004
  Receipt Date: 20241004
  Transmission Date: 20250114
  Serious: No
  Sender: INTRA-CELLULAR THERAPIES
  Company Number: US-INTRA-CELLULAR THERAPIES, INC.-2024ICT01401

PATIENT
  Age: 41 Year
  Sex: Female

DRUGS (1)
  1. CAPLYTA [Suspect]
     Active Substance: LUMATEPERONE
     Indication: Bipolar disorder
     Dosage: 42 MG, 1X/DAY AT NIGHT
     Dates: start: 20240815, end: 20240820

REACTIONS (8)
  - Hot flush [Unknown]
  - Hunger [Not Recovered/Not Resolved]
  - Nasal congestion [Unknown]
  - Insomnia [Unknown]
  - Thirst [Not Recovered/Not Resolved]
  - Energy increased [Unknown]
  - Dry mouth [Unknown]
  - Dizziness [Unknown]

NARRATIVE: CASE EVENT DATE: 20240801
